FAERS Safety Report 5383730-7 (Version None)
Quarter: 2007Q3

REPORT INFORMATION
  Report Type: 
  Country: None (occurrence: None)
  Receive Date: 20070711
  Receipt Date: 20070704
  Transmission Date: 20080115
  Serious: Yes (Other)
  Sender: FDA-Public Use
  Company Number: PHBS2007BR11423

PATIENT
  Sex: Male
  Weight: 73 kg

DRUGS (7)
  1. DIOVAN [Suspect]
     Indication: HYPERTENSION
     Dosage: 880 MG/DAY
     Route: 048
  2. EUTHYROX [Concomitant]
     Indication: THYROID DISORDER
     Dosage: 100 MG/DAY
     Route: 048
     Dates: start: 19830101
  3. METOPROLOL SUCCINATE [Concomitant]
     Indication: CARDIAC DISORDER
     Dosage: 50 MG/DAY
     Route: 048
     Dates: start: 20010101
  4. MONOCORDIL [Concomitant]
     Indication: CARDIAC DISORDER
     Dosage: 100 MG/DAY
     Route: 048
     Dates: start: 20010101
  5. ASPIRIN [Concomitant]
     Indication: CARDIAC DISORDER
     Dosage: 2 TABLET/DAY
     Route: 048
     Dates: start: 20010101
  6. LITO [Concomitant]
     Indication: BLOOD CHOLESTEROL
     Dosage: 80 MG, 5QD
     Route: 048
  7. PLAVIX [Concomitant]
     Indication: INFARCTION
     Dosage: 1 TABLET/DAY
     Route: 048

REACTIONS (4)
  - ACUTE MYOCARDIAL INFARCTION [None]
  - BLOOD CHOLESTEROL [None]
  - BLOOD CREATININE INCREASED [None]
  - RENAL DISORDER [None]
